FAERS Safety Report 4414305-1 (Version None)
Quarter: 2004Q2

REPORT INFORMATION
  Report Type: 
  Country: None (occurrence: None)
  Receive Date: 20040630
  Receipt Date: 20040406
  Transmission Date: 20050107
  Serious: No
  Sender: FDA-Public Use
  Company Number: 04P-163-0252729-00

PATIENT
  Age: 61 Year
  Sex: Male

DRUGS (4)
  1. HUMIRA [Suspect]
     Indication: PSORIATIC ARTHROPATHY
     Dosage: 40 MG, 1 IN 2 WK, SUBCUTANEOUS
     Route: 058
     Dates: start: 20030601
  2. METHOTREXAET SODIUM [Concomitant]
  3. LEFLUNOMIDE [Concomitant]
  4. ATENOLOL [Concomitant]

REACTIONS (4)
  - COUGH [None]
  - FALL [None]
  - PARAESTHESIA [None]
  - SINUSITIS [None]
